FAERS Safety Report 4857324-3 (Version None)
Quarter: 2005Q4

REPORT INFORMATION
  Report Type: 
  Country: None (occurrence: None)
  Receive Date: 20051219
  Receipt Date: 20051207
  Transmission Date: 20060501
  Serious: Yes (Hospitalization)
  Sender: FDA-Public Use
  Company Number: FR-AMGEN-UK160490

PATIENT
  Sex: Female
  Weight: 65 kg

DRUGS (6)
  1. NEULASTA [Suspect]
     Indication: CHEMOTHERAPY
     Route: 058
     Dates: start: 20050415, end: 20050506
  2. TAXOTERE [Suspect]
     Route: 042
     Dates: start: 20050413, end: 20050504
  3. EPIRUBICIN [Concomitant]
     Route: 065
  4. CYCLOPHOSPHAMIDE [Concomitant]
     Route: 065
  5. FLUOROURACIL [Concomitant]
     Route: 065
  6. PREDNISOLONE [Concomitant]
     Route: 065
     Dates: start: 20050501, end: 20050501

REACTIONS (11)
  - BLISTER [None]
  - BURNING SENSATION [None]
  - ERYTHEMA [None]
  - INFLAMMATION [None]
  - MUCOSAL INFLAMMATION [None]
  - NAIL DISORDER [None]
  - PAIN [None]
  - PRURITUS [None]
  - RASH MACULO-PAPULAR [None]
  - SKIN EXFOLIATION [None]
  - TOXIC SKIN ERUPTION [None]
